FAERS Safety Report 19168369 (Version 3)
Quarter: 2021Q3

REPORT INFORMATION
  Report Type: Report from Study
  Country: TH (occurrence: TH)
  Receive Date: 20210422
  Receipt Date: 20210908
  Transmission Date: 20211014
  Serious: Yes (Hospitalization)
  Sender: FDA-Public Use
  Company Number: NVSC2021TH082287

PATIENT
  Sex: Female

DRUGS (1)
  1. KISQALI [Suspect]
     Active Substance: RIBOCICLIB
     Indication: BREAST CANCER METASTATIC
     Dosage: 2 DF, QD (BEFORE MORNING MEAL)
     Route: 065

REACTIONS (3)
  - Lymph node pain [Recovering/Resolving]
  - Lymphadenopathy [Recovering/Resolving]
  - Underdose [Unknown]
